FAERS Safety Report 5237309-8 (Version None)
Quarter: 2007Q2

REPORT INFORMATION
  Report Type: 
  Country: None (occurrence: None)
  Receive Date: 20070213
  Receipt Date: 20070205
  Transmission Date: 20071010
  Serious: Yes (Hospitalization, Other)
  Sender: FDA-Public Use
  Company Number: FR-JNJFOC-20061205819

PATIENT
  Sex: Female
  Weight: 61.5 kg

DRUGS (7)
  1. REMINYL [Suspect]
     Indication: DEMENTIA ALZHEIMER'S TYPE
     Route: 048
  2. REMINYL [Suspect]
     Route: 048
  3. REMINYL [Suspect]
     Route: 048
  4. HEPTAMYL [Concomitant]
     Indication: ORTHOSTATIC HYPOTENSION
  5. TEMESTA [Concomitant]
     Indication: SLEEP DISORDER
  6. HALDOL [Concomitant]
     Indication: MENTAL DISORDER
     Route: 065
  7. MEPRONIZINE [Concomitant]
     Indication: MENTAL DISORDER
     Route: 065

REACTIONS (3)
  - CONVULSION [None]
  - HYPOKALAEMIA [None]
  - HYPONATRAEMIA [None]
